FAERS Safety Report 19149261 (Version 1)
Quarter: 2021Q2

REPORT INFORMATION
  Report Type: Spontaneous
  Country: US (occurrence: US)
  Receive Date: 20210417
  Receipt Date: 20210417
  Transmission Date: 20210717
  Serious: No
  Sender: FDA-Public Use
  Company Number: US-LUPIN PHARMACEUTICALS INC.-2021-04727

PATIENT
  Age: 3 Year

DRUGS (1)
  1. CEFDINIR FOR ORAL SUSPENSION USP 250 MG/5 ML [Suspect]
     Active Substance: CEFDINIR
     Indication: PRODUCT USED FOR UNKNOWN INDICATION
     Dosage: UNK
     Route: 048

REACTIONS (3)
  - No adverse event [Unknown]
  - Poor quality product administered [Unknown]
  - Product storage error [Unknown]
